FAERS Safety Report 9097288 (Version 1)
Quarter: 2013Q1

REPORT INFORMATION
  Report Type: Spontaneous
  Country: US (occurrence: US)
  Receive Date: 20130212
  Receipt Date: 20130212
  Transmission Date: 20140127
  Serious: Yes (Death)
  Sender: FDA-Public Use
  Company Number: US-CELGENEUS-163-22393-12113953

PATIENT
  Age: 28 Year
  Sex: Male

DRUGS (1)
  1. ISTODAX [Suspect]
     Indication: LYMPHOMA
     Dosage: 30 MILLIGRAM
     Route: 041
     Dates: start: 20120703, end: 20120814

REACTIONS (1)
  - Procedural complication [Fatal]
